FAERS Safety Report 15189930 (Version 1)
Quarter: 2018Q3

REPORT INFORMATION
  Report Type: Spontaneous
  Country: ES (occurrence: ES)
  Receive Date: 20180724
  Receipt Date: 20180724
  Transmission Date: 20181010
  Serious: Yes (Life-Threatening, Hospitalization)
  Sender: FDA-Public Use
  Company Number: ES-ASTRAZENECA-2018SE92691

PATIENT
  Age: 59 Year
  Sex: Male

DRUGS (2)
  1. ACETYLSALICYLIC ACID [Suspect]
     Active Substance: ASPIRIN
     Route: 048
     Dates: start: 20180327, end: 20180330
  2. BRILIQUE [Suspect]
     Active Substance: TICAGRELOR
     Dosage: 100 TABLETS
     Route: 048
     Dates: start: 20180327, end: 20180330

REACTIONS (4)
  - Ventricular dysfunction [Recovered/Resolved]
  - Drug ineffective [Recovered/Resolved]
  - Drug dose omission [Recovered/Resolved]
  - Acute myocardial infarction [Recovered/Resolved]

NARRATIVE: CASE EVENT DATE: 20180327
